FAERS Safety Report 4926526-X (Version None)
Quarter: 2006Q1

REPORT INFORMATION
  Report Type: 
  Country: None (occurrence: None)
  Receive Date: 20060228
  Receipt Date: 20050425
  Transmission Date: 20060701
  Serious: No
  Sender: FDA-Public Use
  Company Number: 05P-163-0292500-00

PATIENT
  Age: 68 Year
  Sex: Male

DRUGS (2)
  1. LAMICTAL [Suspect]
     Indication: COMPLEX PARTIAL SEIZURES
     Route: 048
  2. DEPAKOTE ER [Suspect]
     Indication: COMPLEX PARTIAL SEIZURES
     Dosage: 500MG TWICE PER DAY
     Route: 048

REACTIONS (1)
  - ESSENTIAL TREMOR [None]
